FAERS Safety Report 12442652 (Version 1)
Quarter: 2016Q2

REPORT INFORMATION
  Report Type: Spontaneous
  Country: JP (occurrence: JP)
  Receive Date: 20160607
  Receipt Date: 20160607
  Transmission Date: 20160815
  Serious: Yes (Death)
  Sender: FDA-Public Use
  Company Number: JP-MALLINCKRODT-T201602205

PATIENT
  Age: 43 Year
  Sex: Male
  Weight: 71 kg

DRUGS (40)
  1. METHADONE [Suspect]
     Active Substance: METHADONE HYDROCHLORIDE
     Dosage: 10 MG (30 MG DAILY DOSE)
     Route: 048
     Dates: start: 20151001, end: 20151022
  2. METHADONE [Suspect]
     Active Substance: METHADONE HYDROCHLORIDE
     Dosage: 40 MG DAILY DOSE
     Route: 048
     Dates: start: 20151022, end: 20151028
  3. TAKEPRON [Concomitant]
     Active Substance: LANSOPRAZOLE
     Dosage: 30 MG
     Route: 048
     Dates: start: 20150521, end: 20151229
  4. OXINORM [Concomitant]
     Active Substance: OXYCODONE HYDROCHLORIDE
     Indication: ANALGESIC THERAPY
     Dosage: 10 MG, PRN
     Route: 048
     Dates: start: 20150916
  5. LYRICA [Concomitant]
     Active Substance: PREGABALIN
     Dosage: 125 MG
     Route: 048
     Dates: start: 20151029, end: 20151118
  6. DENOTAS [Concomitant]
     Active Substance: CALCIUM CARBONATE\CHOLECALCIFEROL\MAGNESIUM CARBONATE
     Dosage: 22 DF
     Route: 048
     Dates: start: 20150702, end: 20151229
  7. MUCOSTA [Concomitant]
     Active Substance: REBAMIPIDE
     Dosage: 100 MG
     Route: 048
     Dates: start: 20150824, end: 20151104
  8. METHADONE [Suspect]
     Active Substance: METHADONE HYDROCHLORIDE
     Dosage: 55 MG DAILY DOSE
     Route: 048
     Dates: start: 20151028, end: 20151105
  9. OXYCONTIN [Concomitant]
     Active Substance: OXYCODONE HYDROCHLORIDE
     Indication: ANALGESIC THERAPY
     Dosage: 60 MG
     Route: 048
     Dates: start: 20151204, end: 20151213
  10. SODIUM PICOSULFATE [Concomitant]
     Active Substance: SODIUM PICOSULFATE
     Dosage: 0.7 ML
     Route: 048
     Dates: start: 20150713, end: 20150729
  11. MAGMITT [Concomitant]
     Active Substance: MAGNESIUM OXIDE
     Dosage: 1980 MG
     Route: 048
     Dates: start: 20151109, end: 20151223
  12. KETALAR [Concomitant]
     Active Substance: KETAMINE HYDROCHLORIDE
     Dosage: 150 MG
     Route: 051
     Dates: start: 20151203, end: 20151206
  13. KETALAR [Concomitant]
     Active Substance: KETAMINE HYDROCHLORIDE
     Dosage: 200 MG
     Route: 051
     Dates: start: 20151207, end: 20160102
  14. SERENACE [Concomitant]
     Active Substance: HALOPERIDOL
     Dosage: 5 MG
     Route: 051
     Dates: start: 20160101, end: 20160102
  15. METHADONE [Suspect]
     Active Substance: METHADONE HYDROCHLORIDE
     Dosage: 100 MG DAILY DOSE
     Route: 048
     Dates: start: 20151119, end: 20151126
  16. OXYCONTIN [Concomitant]
     Active Substance: OXYCODONE HYDROCHLORIDE
     Dosage: 80 MG, 40 MG
     Route: 048
     Dates: start: 20151214, end: 20151215
  17. CELECOX [Concomitant]
     Active Substance: CELECOXIB
     Indication: ANALGESIC THERAPY
     Dosage: 400 MG
     Route: 048
     Dates: start: 20151105, end: 20151229
  18. LYRICA [Concomitant]
     Active Substance: PREGABALIN
     Dosage: 100 MG, 50 MG
     Route: 048
     Dates: start: 20151008, end: 20151028
  19. LOXOPROFEN [Concomitant]
     Active Substance: LOXOPROFEN
     Indication: ANALGESIC THERAPY
     Dosage: 60 MG
     Route: 048
     Dates: start: 20150824, end: 20151104
  20. LOXONIN [Concomitant]
     Active Substance: LOXOPROFEN SODIUM
     Indication: ANALGESIC THERAPY
     Dosage: 100 MG
     Route: 061
  21. METHADONE [Suspect]
     Active Substance: METHADONE HYDROCHLORIDE
     Dosage: 85 MG DAILY DOSE
     Route: 048
     Dates: start: 20151112, end: 20151119
  22. THYRADIN [Concomitant]
     Active Substance: LEVOTHYROXINE
     Dosage: 50 MCG
     Route: 048
     Dates: start: 20150811, end: 20151229
  23. LYRICA [Concomitant]
     Active Substance: PREGABALIN
     Dosage: 75 MG
     Route: 048
     Dates: start: 20150925, end: 20151007
  24. REFLEX [Concomitant]
     Active Substance: MIRTAZAPINE
     Dosage: 7.5 MG
     Route: 048
     Dates: start: 20150706, end: 20151130
  25. KETALAR [Concomitant]
     Active Substance: KETAMINE HYDROCHLORIDE
     Indication: ANALGESIC THERAPY
     Dosage: 50 MG
     Route: 051
     Dates: start: 20151201, end: 20151201
  26. OXIFAST [Concomitant]
     Active Substance: OXYCODONE
     Dosage: 264 MG
     Route: 051
     Dates: start: 20151228, end: 20160102
  27. METHADONE [Suspect]
     Active Substance: METHADONE HYDROCHLORIDE
     Dosage: 115 MG DAILY DOSE
     Route: 048
     Dates: start: 20151126, end: 20151203
  28. LYRICA [Concomitant]
     Active Substance: PREGABALIN
     Dosage: 150 MG, 75 MG
     Route: 048
     Dates: start: 20151203, end: 20151229
  29. OXIFAST [Concomitant]
     Active Substance: OXYCODONE
     Indication: ANALGESIC THERAPY
     Dosage: 168 MG
     Route: 051
     Dates: start: 20151224, end: 20151225
  30. DORMICUM [Concomitant]
     Active Substance: MIDAZOLAM\MIDAZOLAM HYDROCHLORIDE
     Dosage: 15 MG
     Route: 051
     Dates: start: 20160101, end: 20160102
  31. KETALAR [Concomitant]
     Active Substance: KETAMINE HYDROCHLORIDE
     Dosage: 100 MG
     Route: 051
     Dates: start: 20151202, end: 20151202
  32. METHADONE [Suspect]
     Active Substance: METHADONE HYDROCHLORIDE
     Indication: CANCER PAIN
     Dosage: 5 MG (15 MG DAILY DOSE)
     Route: 048
     Dates: start: 20150917, end: 20151001
  33. METHADONE [Suspect]
     Active Substance: METHADONE HYDROCHLORIDE
     Dosage: 70 MG DAILY DOSE
     Route: 048
     Dates: start: 20151105, end: 20151112
  34. METHADONE [Suspect]
     Active Substance: METHADONE HYDROCHLORIDE
     Dosage: 40 MG (120 MG DAILY DOSE)
     Route: 048
     Dates: start: 20151203, end: 20160101
  35. OXYCONTIN [Concomitant]
     Active Substance: OXYCODONE HYDROCHLORIDE
     Dosage: 100 MG, 50 MG
     Route: 048
     Dates: start: 20151216, end: 20151220
  36. OXYCONTIN [Concomitant]
     Active Substance: OXYCODONE HYDROCHLORIDE
     Dosage: 160 MG, 80 MG
     Route: 048
     Dates: start: 20151221, end: 20151224
  37. LYRICA [Concomitant]
     Active Substance: PREGABALIN
     Indication: ANALGESIC THERAPY
     Dosage: 50 MG, 25 MG
     Route: 048
     Dates: start: 20150908, end: 20150924
  38. LYRICA [Concomitant]
     Active Substance: PREGABALIN
     Dosage: 200 MG, 100 MG
     Route: 048
     Dates: start: 20151119, end: 20151202
  39. RANMARK [Concomitant]
     Active Substance: DENOSUMAB
     Indication: ANALGESIC THERAPY
     Dosage: 120 MG
     Route: 058
     Dates: start: 20150924, end: 20150924
  40. OXIFAST [Concomitant]
     Active Substance: OXYCODONE
     Dosage: 216 MG
     Route: 051
     Dates: start: 20151226, end: 20151227

REACTIONS (1)
  - Malignant neoplasm of unknown primary site [Fatal]

NARRATIVE: CASE EVENT DATE: 20160102
